FAERS Safety Report 5918671-7 (Version None)
Quarter: 2008Q4

REPORT INFORMATION
  Report Type: 
  Country: None (occurrence: None)
  Receive Date: 20081015
  Receipt Date: 20080528
  Transmission Date: 20090506
  Serious: No
  Sender: FDA-Public Use
  Company Number: US-ASTRAZENECA-2008UW10800

PATIENT
  Age: 69 Year
  Sex: Female

DRUGS (9)
  1. SYMBICORT [Suspect]
     Indication: ASTHMA
     Dosage: 80/4.5 UG ONE PUFF
     Route: 055
  2. SYNTHROID [Concomitant]
  3. HYDROCHLOROTHIAZIDE [Concomitant]
  4. POTASSIUM CHLORIDE [Concomitant]
  5. CALAN [Concomitant]
  6. BENADRYL [Concomitant]
  7. PRAVACHOL [Concomitant]
  8. ALBUTEROL [Concomitant]
  9. ATROVENT [Concomitant]

REACTIONS (4)
  - NERVOUSNESS [None]
  - PALPITATIONS [None]
  - PRODUCTIVE COUGH [None]
  - TREMOR [None]
